FAERS Safety Report 9924531 (Version 3)
Quarter: 2014Q2

REPORT INFORMATION
  Report Type: Spontaneous
  Country: US (occurrence: US)
  Receive Date: 20140226
  Receipt Date: 20140430
  Transmission Date: 20141212
  Serious: No
  Sender: FDA-Public Use
  Company Number: US-PFIZER INC-2014051624

PATIENT
  Age: 72 Year
  Sex: Female

DRUGS (1)
  1. CHANTIX [Suspect]
     Indication: SMOKING CESSATION THERAPY
     Dosage: 1 DF, 2X/DAY

REACTIONS (6)
  - Tobacco user [Unknown]
  - Anxiety [Unknown]
  - Irritability [Unknown]
  - Bronchitis [Recovering/Resolving]
  - Cataract [Unknown]
  - Visual impairment [Unknown]
